FAERS Safety Report 4433132-2 (Version None)
Quarter: 2004Q3

REPORT INFORMATION
  Report Type: 
  Country: None (occurrence: None)
  Receive Date: 20040823
  Receipt Date: 20040809
  Transmission Date: 20050211
  Serious: Yes (Hospitalization, Other)
  Sender: FDA-Public Use
  Company Number: 2003036363

PATIENT
  Age: 85 Year
  Sex: Female
  Weight: 49.8957 kg

DRUGS (4)
  1. NORVASC [Suspect]
     Indication: HYPERTENSION
     Dosage: 5 MG (5 MG, 1 IN 1 D), ORAL
     Route: 048
     Dates: start: 20021201
  2. MOTRIN [Suspect]
     Indication: PAIN
     Dates: start: 20040101, end: 20040101
  3. ULTRAM [Suspect]
     Indication: PAIN
     Dosage: ORAL
     Route: 048
     Dates: start: 20040101
  4. ALENDRONATE SODIUM [Concomitant]

REACTIONS (14)
  - BLOOD PRESSURE DECREASED [None]
  - CREATININE RENAL CLEARANCE DECREASED [None]
  - DYSPNOEA [None]
  - EPISTAXIS [None]
  - FACIAL BONES FRACTURE [None]
  - FALL [None]
  - FOREIGN BODY TRAUMA [None]
  - HYPOVENTILATION [None]
  - MUSCLE SPASMS [None]
  - OEDEMA PERIPHERAL [None]
  - PHARYNGOLARYNGEAL PAIN [None]
  - PROTEIN TOTAL DECREASED [None]
  - SPINAL FRACTURE [None]
  - THROAT IRRITATION [None]
